FAERS Safety Report 9642114 (Version 2)
Quarter: 2013Q4

REPORT INFORMATION
  Report Type: Report from Study
  Country: US (occurrence: US)
  Receive Date: 20131023
  Receipt Date: 20131106
  Transmission Date: 20140711
  Serious: Yes (Death, Hospitalization)
  Sender: FDA-Public Use
  Company Number: US-ROCHE-1290622

PATIENT
  Age: 84 Year
  Sex: Female
  Weight: 56.93 kg

DRUGS (10)
  1. AVASTIN [Suspect]
     Indication: MALIGNANT MELANOMA
     Route: 042
     Dates: start: 20081205
  2. CARBOPLATIN [Concomitant]
     Route: 042
     Dates: start: 20081205
  3. TAXOL [Concomitant]
     Route: 042
     Dates: start: 20081205
  4. ALOXI [Concomitant]
     Route: 042
     Dates: start: 20081205
  5. BENADRYL (UNITED STATES) [Concomitant]
     Route: 042
     Dates: start: 20081205
  6. DECADRON [Concomitant]
     Route: 042
     Dates: start: 20081205
  7. TAGAMET [Concomitant]
     Route: 042
     Dates: start: 20081205
  8. NORMAL SALINE [Concomitant]
     Route: 065
     Dates: start: 20090123
  9. FAMOTIDINE [Concomitant]
     Route: 042
     Dates: start: 20100429
  10. EMEND [Concomitant]
     Route: 042
     Dates: start: 20100914

REACTIONS (10)
  - Atrial fibrillation [Fatal]
  - Cardiac arrest [Fatal]
  - Cerebrovascular accident [Unknown]
  - Disease progression [Unknown]
  - Fatigue [Recovering/Resolving]
  - Decreased appetite [Unknown]
  - Pain [Unknown]
  - Skin lesion [Unknown]
  - Cellulitis [Unknown]
  - Weight decreased [Unknown]
